FAERS Safety Report 8369924-7 (Version None)
Quarter: 2012Q1

REPORT INFORMATION
  Report Type: 
  Country: None (occurrence: None)
  Receive Date: 20120323
  Receipt Date: 20110630
  Transmission Date: 20120608
  Serious: Yes (Other)
  Sender: FDA-Public Use
  Company Number: 163-21880-11070252

PATIENT
  Age: 76 Year
  Sex: Male
  Weight: 63.9 kg

DRUGS (1)
  1. REVLIMID [Suspect]
     Indication: MYELOFIBROSIS
     Dosage: 5 MG, DAILY EVERY 28 DAYS, PO
     Route: 048
     Dates: start: 20110602

REACTIONS (5)
  - ABDOMINAL DISTENSION [None]
  - FULL BLOOD COUNT DECREASED [None]
  - FATIGUE [None]
  - DYSPNOEA [None]
  - OEDEMA PERIPHERAL [None]
